FAERS Safety Report 10974874 (Version 2)
Quarter: 2015Q2

REPORT INFORMATION
  Report Type: Spontaneous
  Country: BR (occurrence: BR)
  Receive Date: 20150401
  Receipt Date: 20150409
  Transmission Date: 20150821
  Serious: Yes (Death, Hospitalization, Other)
  Sender: FDA-Public Use
  Company Number: PHHY2015BR037830

PATIENT
  Age: 86 Year
  Sex: Female
  Weight: 85.1 kg

DRUGS (5)
  1. BORTEZOMIB [Suspect]
     Active Substance: BORTEZOMIB
     Indication: PLASMA CELL MYELOMA
     Dosage: 2.2 MG (PRODUCT DILUTED AS PACKAGE INSERT IN 1.4 ML OF SALINE SOLUTION)
     Route: 058
  2. ZOMETA [Suspect]
     Active Substance: ZOLEDRONIC ACID
     Indication: PRODUCT USED FOR UNKNOWN INDICATION
     Dosage: 4 MG, EVERY 28 DAYS
     Route: 065
  3. ALKERAN [Concomitant]
     Active Substance: MELPHALAN
     Indication: PRODUCT USED FOR UNKNOWN INDICATION
     Dosage: 8 MG, QD
     Route: 065
  4. BORTEZOMIB [Suspect]
     Active Substance: BORTEZOMIB
     Dosage: 2.2 MG (PRODUCT DILUTED AS PACKAGE INSERT IN 1.4 ML OF SALINE SOLUTION)
     Route: 058
  5. BORTEZOMIB [Suspect]
     Active Substance: BORTEZOMIB
     Dosage: 2.2 MG (PRODUCT DILUTED AS PACKAGE INSERT IN 1.4 ML OF SALINE SOLUTION)
     Route: 058

REACTIONS (5)
  - Oedema peripheral [Unknown]
  - Fatigue [Unknown]
  - Face oedema [Unknown]
  - Dyspnoea [Unknown]
  - Disease progression [Fatal]
